FAERS Safety Report 7528034-9 (Version None)
Quarter: 2011Q2

REPORT INFORMATION
  Report Type: 
  Country: None (occurrence: None)
  Receive Date: 20110607
  Receipt Date: 20091122
  Transmission Date: 20111010
  Serious: Yes (Death, Hospitalization, Other)
  Sender: FDA-Public Use
  Company Number: US-BAYER-200939874NA

PATIENT
  Age: 69 Year
  Sex: Male
  Weight: 102 kg

DRUGS (22)
  1. RED BLOOD CELLS [Concomitant]
     Dosage: 2 U, UNK
     Route: 042
     Dates: start: 20060913
  2. HYDRALAZINE HCL [Concomitant]
     Dosage: 50 MG, BID
     Route: 048
  3. FUROSEMIDE [Concomitant]
     Dosage: 40 MG, EVERY 12 HRS
     Route: 048
  4. TRASYLOL [Suspect]
     Dosage: 25 ML/HOUR INFUSION
     Dates: start: 20060913, end: 20060913
  5. HYDROCHLOROTHIAZIDE [Concomitant]
     Dosage: 12.5 MG, QD
     Route: 048
     Dates: start: 19980209
  6. HEPARIN [Concomitant]
     Dosage: 70000 U, UNK
     Dates: start: 20060913
  7. INSULIN [Concomitant]
     Dosage: 1-2 UNITS/HOUR
     Route: 042
     Dates: start: 20060913, end: 20060918
  8. ATENOLOL [Concomitant]
     Dosage: 100 MG, QD
     Route: 048
     Dates: start: 19970311
  9. ACETYLSALICYLIC ACID SRT [Concomitant]
     Dosage: 81 MG, QD
     Route: 048
     Dates: start: 20060909
  10. INSULIN [Concomitant]
     Dosage: EVERY SIX HOURS
     Route: 058
     Dates: start: 20060909
  11. LISINOPRIL [Concomitant]
     Dosage: 40 MG, QD
     Route: 048
  12. ALLOPURINOL [Concomitant]
     Dosage: 100 MG, QD
     Route: 048
     Dates: start: 20030801
  13. ETOMIDATE [Concomitant]
     Dosage: 20 MG, UNK
     Route: 042
     Dates: start: 20060913
  14. LISINOPRIL [Concomitant]
     Dosage: 20 MG, QD
     Route: 048
  15. PLAVIX [Concomitant]
     Dosage: 75 MG, QD
     Route: 048
     Dates: start: 19990426
  16. NITROGLYCERIN [Concomitant]
     Dosage: 50-100 MICROGRAMS
     Route: 042
     Dates: start: 20060913
  17. TRASYLOL [Suspect]
     Indication: AORTIC VALVE REPLACEMENT
     Dosage: 1 ML, INITIAL DOSE
     Route: 042
     Dates: start: 20060913, end: 20060913
  18. TRASYLOL [Suspect]
     Indication: CORONARY ARTERY BYPASS
     Dosage: 100 ML LOADING DOSE
     Dates: start: 20060913, end: 20060913
  19. FRESH FROZEN PLASMA [Concomitant]
     Dosage: 2 U, UNK
     Route: 042
     Dates: start: 20060913
  20. SIMVASTATIN [Concomitant]
     Dosage: 20 MG, QD
     Route: 048
     Dates: start: 19980810
  21. CEFAZOLIN [Concomitant]
     Dosage: 1 G, UNK
     Route: 042
     Dates: start: 20060913
  22. MANNITOL [Concomitant]
     Dosage: 37.5 G, UNK
     Dates: start: 20060913

REACTIONS (12)
  - FEAR [None]
  - RENAL INJURY [None]
  - ANXIETY [None]
  - EMOTIONAL DISTRESS [None]
  - RENAL FAILURE ACUTE [None]
  - RENAL IMPAIRMENT [None]
  - INJURY [None]
  - DEATH [None]
  - STRESS [None]
  - UNEVALUABLE EVENT [None]
  - PAIN [None]
  - ANHEDONIA [None]
